FAERS Safety Report 25763923 (Version 1)
Quarter: 2025Q3

REPORT INFORMATION
  Report Type: Spontaneous
  Country: US (occurrence: US)
  Receive Date: 20250905
  Receipt Date: 20250905
  Transmission Date: 20251020
  Serious: No
  Sender: DOMPE FARMACEUTICI
  Company Number: US-FARMAPROD-202411-3898

PATIENT
  Age: 75 Year
  Sex: Female

DRUGS (6)
  1. OXERVATE [Suspect]
     Active Substance: CENEGERMIN-BKBJ
     Indication: Neurotrophic keratopathy
     Route: 047
     Dates: start: 20241015
  2. NEXIUM [Concomitant]
     Active Substance: ESOMEPRAZOLE MAGNESIUM
  3. THERACRAN [Concomitant]
  4. DEMANNOSE [Concomitant]
     Active Substance: DEMANNOSE
  5. MINERALS\VITAMINS [Concomitant]
     Active Substance: MINERALS\VITAMINS
  6. ROSUVASTATIN CALCIUM [Concomitant]
     Active Substance: ROSUVASTATIN CALCIUM

REACTIONS (4)
  - Periorbital pain [Unknown]
  - Eyelid pain [Not Recovered/Not Resolved]
  - Eye pain [Unknown]
  - Eye swelling [Unknown]

NARRATIVE: CASE EVENT DATE: 20241110
